FAERS Safety Report 11291906 (Version 4)
Quarter: 2015Q4

REPORT INFORMATION
  Report Type: Report from Study
  Country: US (occurrence: US)
  Receive Date: 20150722
  Receipt Date: 20151113
  Transmission Date: 20160304
  Serious: Yes (Hospitalization, Other)
  Sender: FDA-Public Use
  Company Number: US-ABBVIE-12P-163-0925478-00

PATIENT
  Age: 61 Year
  Sex: Male
  Weight: 68.1 kg

DRUGS (16)
  1. HUMIRA [Suspect]
     Active Substance: ADALIMUMAB
     Indication: CROHN^S DISEASE
     Dosage: DAY 1
     Route: 058
     Dates: start: 20110807, end: 20110807
  2. HUMIRA [Suspect]
     Active Substance: ADALIMUMAB
     Route: 058
     Dates: start: 2011, end: 2011
  3. PROTONIX [Concomitant]
     Active Substance: PANTOPRAZOLE SODIUM
     Indication: GASTROOESOPHAGEAL REFLUX DISEASE
  4. UROCIT-K [Concomitant]
     Active Substance: POTASSIUM CITRATE
     Indication: NEPHROLITHIASIS
  5. IMODIUM [Concomitant]
     Active Substance: LOPERAMIDE HYDROCHLORIDE
     Indication: PRODUCT USED FOR UNKNOWN INDICATION
  6. HUMIRA [Suspect]
     Active Substance: ADALIMUMAB
     Route: 058
     Dates: start: 2011
  7. ROCALCEROL [Concomitant]
     Indication: VITAMIN D ABNORMAL
  8. FLECAINIDE [Concomitant]
     Active Substance: FLECAINIDE
  9. FLECAINIDE [Concomitant]
     Active Substance: FLECAINIDE
  10. PENTASA [Concomitant]
     Active Substance: MESALAMINE
     Indication: CROHN^S DISEASE
     Dosage: FOR YEARS
  11. HUMIRA [Suspect]
     Active Substance: ADALIMUMAB
     Route: 058
     Dates: start: 20110821, end: 20110821
  12. FLECAINIDE [Concomitant]
     Active Substance: FLECAINIDE
     Indication: ATRIAL FIBRILLATION
  13. ATENOLOL. [Concomitant]
     Active Substance: ATENOLOL
     Indication: HYPERTENSION
     Dates: start: 1991
  14. UROCIT-K [Concomitant]
     Active Substance: POTASSIUM CITRATE
     Indication: PH BODY FLUID ABNORMAL
     Dosage: FOR YEARS
  15. ENTOCORT [Concomitant]
     Active Substance: BUDESONIDE
     Indication: PRODUCT USED FOR UNKNOWN INDICATION
  16. LOMOTIL [Concomitant]
     Active Substance: ATROPINE SULFATE\DIPHENOXYLATE HYDROCHLORIDE
     Indication: PRODUCT USED FOR UNKNOWN INDICATION
     Dates: start: 1980

REACTIONS (24)
  - Feeling abnormal [Unknown]
  - Stoma site reaction [Not Recovered/Not Resolved]
  - Myalgia [Recovering/Resolving]
  - Influenza like illness [Not Recovered/Not Resolved]
  - White blood cell disorder [Unknown]
  - Arthralgia [Not Recovered/Not Resolved]
  - Oesophageal candidiasis [Unknown]
  - Bloody discharge [Not Recovered/Not Resolved]
  - Unevaluable event [Unknown]
  - Gastrointestinal stoma complication [Unknown]
  - Stoma site ulcer [Not Recovered/Not Resolved]
  - Stoma site discharge [Not Recovered/Not Resolved]
  - Atrial fibrillation [Unknown]
  - Abdominal pain [Unknown]
  - Atrial fibrillation [Recovered/Resolved]
  - Vomiting [Recovering/Resolving]
  - Peripheral swelling [Not Recovered/Not Resolved]
  - Drug ineffective [Not Recovered/Not Resolved]
  - Hyperhidrosis [Recovering/Resolving]
  - Impaired healing [Not Recovered/Not Resolved]
  - Adhesion [Not Recovered/Not Resolved]
  - Oropharyngeal candidiasis [Unknown]
  - Nausea [Unknown]
  - Transient ischaemic attack [Not Recovered/Not Resolved]

NARRATIVE: CASE EVENT DATE: 20110807
